FAERS Safety Report 13255949 (Version 1)
Quarter: 2017Q1

REPORT INFORMATION
  Report Type: Report from Study
  Country: US (occurrence: US)
  Receive Date: 20170221
  Receipt Date: 20170221
  Transmission Date: 20170428
  Serious: Yes (Life-Threatening, Hospitalization, Other)
  Sender: FDA-Public Use
  Company Number: US-MYLANLABS-2017M1009444

PATIENT

DRUGS (4)
  1. MIDAZOLAM [Suspect]
     Active Substance: MIDAZOLAM HYDROCHLORIDE
  2. FENTANYL. [Suspect]
     Active Substance: FENTANYL
     Route: 048
  3. ATROPINE. [Suspect]
     Active Substance: ATROPINE
  4. LORAZEPAM. [Suspect]
     Active Substance: LORAZEPAM

REACTIONS (2)
  - Depressed level of consciousness [Unknown]
  - Accidental exposure to product by child [Unknown]
